FAERS Safety Report 14647117 (Version 3)
Quarter: 2018Q2

REPORT INFORMATION
  Report Type: Spontaneous
  Country: US (occurrence: US)
  Receive Date: 20180316
  Receipt Date: 20180605
  Transmission Date: 20180711
  Serious: Yes (Disabling, Other)
  Sender: FDA-Public Use
  Company Number: US-ABBVIE-18S-163-2285977-00

PATIENT
  Sex: Female
  Weight: 108.05 kg

DRUGS (1)
  1. LUPRON DEPOT [Suspect]
     Active Substance: LEUPROLIDE ACETATE
     Indication: UTERINE LEIOMYOMA
     Route: 030
     Dates: start: 2003, end: 2003

REACTIONS (63)
  - Corneal oedema [Not Recovered/Not Resolved]
  - Nerve conduction studies abnormal [Not Recovered/Not Resolved]
  - Hepatic steatosis [Not Recovered/Not Resolved]
  - Constipation [Not Recovered/Not Resolved]
  - Urine odour abnormal [Not Recovered/Not Resolved]
  - Breath odour [Not Recovered/Not Resolved]
  - Breast atrophy [Not Recovered/Not Resolved]
  - Urinary tract infection [Unknown]
  - Large intestine polyp [Recovered/Resolved]
  - Anxiety [Not Recovered/Not Resolved]
  - Eye inflammation [Not Recovered/Not Resolved]
  - Nail discolouration [Not Recovered/Not Resolved]
  - Crying [Not Recovered/Not Resolved]
  - Asthenia [Not Recovered/Not Resolved]
  - Blood pressure inadequately controlled [Not Recovered/Not Resolved]
  - Renal cyst [Not Recovered/Not Resolved]
  - Dry skin [Not Recovered/Not Resolved]
  - Hair texture abnormal [Not Recovered/Not Resolved]
  - Ear pruritus [Not Recovered/Not Resolved]
  - Trigger finger [Not Recovered/Not Resolved]
  - Seborrhoeic dermatitis [Not Recovered/Not Resolved]
  - Vulvovaginal mycotic infection [Recovered/Resolved]
  - Ovarian cyst [Not Recovered/Not Resolved]
  - Hair injury [Not Recovered/Not Resolved]
  - Hepatic enzyme increased [Not Recovered/Not Resolved]
  - Middle ear effusion [Not Recovered/Not Resolved]
  - Inflammation [Not Recovered/Not Resolved]
  - Pain in extremity [Not Recovered/Not Resolved]
  - Aggression [Not Recovered/Not Resolved]
  - Depression [Not Recovered/Not Resolved]
  - Pollakiuria [Not Recovered/Not Resolved]
  - Ovarian atrophy [Not Recovered/Not Resolved]
  - Pain in extremity [Not Recovered/Not Resolved]
  - Diabetes mellitus [Not Recovered/Not Resolved]
  - Dental caries [Not Recovered/Not Resolved]
  - Alopecia [Not Recovered/Not Resolved]
  - Peripheral nerve injury [Not Recovered/Not Resolved]
  - Anxiety [Not Recovered/Not Resolved]
  - Adnexa uteri pain [Not Recovered/Not Resolved]
  - Ovarian cyst ruptured [Not Recovered/Not Resolved]
  - Eye pain [Not Recovered/Not Resolved]
  - Visual impairment [Not Recovered/Not Resolved]
  - Muscular weakness [Not Recovered/Not Resolved]
  - Paraesthesia [Not Recovered/Not Resolved]
  - Intestinal pseudo-obstruction [Not Recovered/Not Resolved]
  - Weight increased [Not Recovered/Not Resolved]
  - Abdominal distension [Not Recovered/Not Resolved]
  - Deafness neurosensory [Not Recovered/Not Resolved]
  - Ear infection [Not Recovered/Not Resolved]
  - Vaginal discharge [Not Recovered/Not Resolved]
  - Nerve injury [Not Recovered/Not Resolved]
  - Uterine leiomyoma [Not Recovered/Not Resolved]
  - Gallbladder cholesterolosis [Not Recovered/Not Resolved]
  - Arthralgia [Not Recovered/Not Resolved]
  - Blood oestrogen decreased [Not Recovered/Not Resolved]
  - Areflexia [Not Recovered/Not Resolved]
  - Arthropathy [Not Recovered/Not Resolved]
  - Pneumonia [Recovered/Resolved]
  - Muscular weakness [Not Recovered/Not Resolved]
  - Neuralgia [Not Recovered/Not Resolved]
  - Insomnia [Not Recovered/Not Resolved]
  - Bone density decreased [Not Recovered/Not Resolved]
  - Carpal tunnel syndrome [Not Recovered/Not Resolved]

NARRATIVE: CASE EVENT DATE: 2003
